FAERS Safety Report 4494547-X (Version None)
Quarter: 2004Q4

REPORT INFORMATION
  Report Type: 
  Country: None (occurrence: None)
  Receive Date: 20041103
  Receipt Date: 20041026
  Transmission Date: 20050328
  Serious: Yes (Hospitalization)
  Sender: FDA-Public Use
  Company Number: 430013M04FRA

PATIENT
  Age: 76 Year
  Sex: Male

DRUGS (4)
  1. NOVANTRONE [Suspect]
     Indication: PROSTATE CANCER
     Dosage: INTRAVENOUS
     Route: 042
  2. KALETRA [Concomitant]
  3. EFAVIRENZ [Concomitant]
  4. ANTIVIRALS FOR SYSTEMIC USE [Concomitant]

REACTIONS (5)
  - ELECTROCARDIOGRAM Q WAVES [None]
  - LEFT VENTRICULAR FAILURE [None]
  - MITRAL VALVE INCOMPETENCE [None]
  - PERICARDIAL EFFUSION [None]
  - PLEURAL EFFUSION [None]
